FAERS Safety Report 17398631 (Version 1)
Quarter: 2020Q1

REPORT INFORMATION
  Report Type: Spontaneous
  Country: US (occurrence: US)
  Receive Date: 20200210
  Receipt Date: 20200210
  Transmission Date: 20200409
  Serious: No
  Sender: FDA-Public Use
  Company Number: US-NOVOPROD-694137

PATIENT
  Age: 74 Year
  Sex: Male

DRUGS (4)
  1. HEMLIBRA [Concomitant]
     Active Substance: EMICIZUMAB-KXWH
     Indication: PRODUCT USED FOR UNKNOWN INDICATION
     Dosage: UNK
  2. NOVOSEVEN RT [Suspect]
     Active Substance: COAGULATION FACTOR VIIA RECOMBINANT HUMAN
     Indication: FALL
  3. NOVOSEVEN RT [Suspect]
     Active Substance: COAGULATION FACTOR VIIA RECOMBINANT HUMAN
     Indication: HEAD INJURY
     Dosage: UNK
     Route: 058
     Dates: start: 20191005
  4. NOVOSEVEN RT [Suspect]
     Active Substance: COAGULATION FACTOR VIIA RECOMBINANT HUMAN
     Indication: HAEMORRHAGE

REACTIONS (1)
  - Drug ineffective [Unknown]

NARRATIVE: CASE EVENT DATE: 201910
